FAERS Safety Report 4849627-3 (Version None)
Quarter: 2005Q4

REPORT INFORMATION
  Report Type: 
  Country: None (occurrence: None)
  Receive Date: 20051115
  Receipt Date: 20050920
  Transmission Date: 20060501
  Serious: No
  Sender: FDA-Public Use
  Company Number: S05-USA-04518-01

PATIENT
  Age: 78 Year
  Sex: Male

DRUGS (3)
  1. NAMENDA [Suspect]
     Indication: DEMENTIA ALZHEIMER'S TYPE
     Dosage: 5 MG QD PO
     Route: 048
     Dates: start: 20050916
  2. ARICEPT [Concomitant]
  3. LITHIUM [Concomitant]

REACTIONS (1)
  - TREMOR [None]
